FAERS Safety Report 4433174-7 (Version None)
Quarter: 2004Q3

REPORT INFORMATION
  Report Type: 
  Country: None (occurrence: None)
  Receive Date: 20040823
  Receipt Date: 20040808
  Transmission Date: 20050211
  Serious: Yes (Other)
  Sender: FDA-Public Use
  Company Number: 2004054688

PATIENT
  Sex: Female
  Weight: 74.8435 kg

DRUGS (2)
  1. DILANTIN [Suspect]
     Indication: CONVULSION
     Dosage: SEE IMAGE
     Route: 048
     Dates: start: 20040807, end: 20040801
  2. LEVOTHYROXINE SODIUM [Concomitant]

REACTIONS (4)
  - CONVULSION [None]
  - DRUG LEVEL BELOW THERAPEUTIC [None]
  - NAUSEA [None]
  - PHARMACEUTICAL PRODUCT COMPLAINT [None]
